FAERS Safety Report 26037655 (Version 1)
Quarter: 2025Q4

REPORT INFORMATION
  Report Type: Spontaneous
  Country: CA (occurrence: CA)
  Receive Date: 20251112
  Receipt Date: 20251112
  Transmission Date: 20260118
  Serious: Yes (Other)
  Sender: INTERCEPT PHARMACEUTICALS
  Company Number: CA-ADVANZ PHARMA-202510009284

PATIENT
  Age: 35 Year
  Sex: Female
  Weight: 91 kg

DRUGS (3)
  1. OCALIVA [Suspect]
     Active Substance: OBETICHOLIC ACID
     Indication: Primary biliary cholangitis
     Dosage: 5 MG, QD (OCALIVA)
     Dates: start: 20250331, end: 202510
  2. URSODIOL [Concomitant]
     Active Substance: URSODIOL
     Indication: Primary biliary cholangitis
     Dosage: UNK
  3. FENOFIBRATE [Concomitant]
     Active Substance: FENOFIBRATE
     Indication: Product used for unknown indication
     Dosage: UNK

REACTIONS (6)
  - Alanine aminotransferase increased [Unknown]
  - Hepatic enzyme increased [Unknown]
  - Pruritus [Recovering/Resolving]
  - Sleep disorder [Unknown]
  - Fatigue [Unknown]
  - Drug ineffective [Unknown]

NARRATIVE: CASE EVENT DATE: 20250401
